FAERS Safety Report 9716300 (Version 1)
Quarter: 2013Q4

REPORT INFORMATION
  Report Type: Spontaneous
  Country: US (occurrence: None)
  Receive Date: 20131126
  Receipt Date: 20131126
  Transmission Date: 20140711
  Serious: No
  Sender: FDA-Public Use
  Company Number: None

PATIENT
  Sex: Female

DRUGS (2)
  1. AFINITOR 2.5 MG NOVARTIS [Suspect]
     Route: 048
     Dates: start: 20130928, end: 201311
  2. NITROGLYCERIN ER [Concomitant]

REACTIONS (1)
  - Hallucination, visual [None]
